FAERS Safety Report 16277086 (Version 1)
Quarter: 2019Q2

REPORT INFORMATION
  Report Type: Spontaneous
  Country: US (occurrence: US)
  Receive Date: 20190506
  Receipt Date: 20190506
  Transmission Date: 20190711
  Serious: No
  Sender: FDA-Public Use
  Company Number: US-PFIZER INC-2019189303

PATIENT
  Age: 73 Year
  Sex: Female
  Weight: 72.57 kg

DRUGS (4)
  1. PREMARIN [Suspect]
     Active Substance: ESTROGENS, CONJUGATED
     Indication: HYPERHIDROSIS
  2. PREMARIN [Suspect]
     Active Substance: ESTROGENS, CONJUGATED
     Indication: HOT FLUSH
  3. PREMARIN [Suspect]
     Active Substance: ESTROGENS, CONJUGATED
     Indication: HEADACHE
  4. PREMARIN [Suspect]
     Active Substance: ESTROGENS, CONJUGATED
     Indication: MIGRAINE
     Dosage: 0.625 MG, UNK (0.625MG TAKES ALL THROUGH MONTH AND 7 DAYS OUT OF MONTH DOESN^T TAKE IT )
     Dates: start: 1979

REACTIONS (1)
  - Weight decreased [Unknown]
